FAERS Safety Report 6012017-4 (Version None)
Quarter: 2008Q4

REPORT INFORMATION
  Report Type: 
  Country: None (occurrence: None)
  Receive Date: 20081218
  Receipt Date: 20081027
  Transmission Date: 20090506
  Serious: No
  Sender: FDA-Public Use
  Company Number: US-ASTRAZENECA-2008UW24032

PATIENT
  Age: 51 Year
  Sex: Female
  Weight: 97.5 kg

DRUGS (12)
  1. CRESTOR [Suspect]
     Route: 048
  2. CRESTOR [Suspect]
     Route: 048
  3. FOLIC ACID [Concomitant]
  4. PROTONIX [Concomitant]
  5. ALPHAGAN [Concomitant]
  6. LUMIGAN [Concomitant]
  7. PLAVIX [Concomitant]
  8. METOPROLOL TARTRATE [Concomitant]
     Route: 048
  9. ASPIRIN [Concomitant]
  10. GLUCOPHAGE [Concomitant]
  11. MULTI-VITAMIN [Concomitant]
  12. LOVESA [Concomitant]

REACTIONS (2)
  - ARTHRALGIA [None]
  - MUSCULOSKELETAL STIFFNESS [None]
